FAERS Safety Report 21908619 (Version 1)
Quarter: 2023Q1

REPORT INFORMATION
  Report Type: Spontaneous
  Country: US (occurrence: None)
  Receive Date: 20230124
  Receipt Date: 20230124
  Transmission Date: 20230418
  Serious: Yes (Other)
  Sender: FDA-Public Use
  Company Number: None

PATIENT
  Age: 66 Year
  Sex: Male
  Weight: 97.65 kg

DRUGS (1)
  1. REXULTI [Suspect]
     Active Substance: BREXPIPRAZOLE
     Indication: Major depression
     Dosage: FREQUENCY : DAILY;?
     Route: 048

REACTIONS (3)
  - Tardive dyskinesia [None]
  - Therapy change [None]
  - Condition aggravated [None]

NARRATIVE: CASE EVENT DATE: 20230124
